FAERS Safety Report 9827449 (Version 1)
Quarter: 2014Q1

REPORT INFORMATION
  Report Type: Spontaneous
  Country: JP (occurrence: JP)
  Receive Date: 20140117
  Receipt Date: 20140117
  Transmission Date: 20141002
  Serious: Yes (Life-Threatening)
  Sender: FDA-Public Use
  Company Number: JP-B.I. PHARMACEUTICALS,INC./RIDGEFIELD-2014-BI-02136GL

PATIENT
  Age: 68 Year
  Sex: Male

DRUGS (11)
  1. MICARDIS [Suspect]
     Indication: HYPERTENSION
     Dosage: 40 MG
     Route: 048
     Dates: end: 20131027
  2. VALTREX [Suspect]
     Indication: VARICELLA
     Dosage: 3000 MG
     Route: 048
     Dates: start: 20131023, end: 20131027
  3. BAYASPIRIN [Suspect]
     Indication: CORONARY ANGIOPLASTY
     Dosage: 100 MG
     Route: 048
  4. LOXOPROFEN [Suspect]
     Indication: ANTIPYRESIS
     Dosage: 3 G
     Route: 048
     Dates: start: 20131022, end: 20131027
  5. PL GRANULES (SALICYLAMIDE + METHYLENEDISALICYLIC ACID + PROMETHAZINE) [Suspect]
     Indication: NASOPHARYNGITIS
     Dosage: 3 G
     Route: 048
     Dates: start: 20131022, end: 20131027
  6. FLOMOX [Suspect]
     Indication: NASOPHARYNGITIS
     Dosage: 300 MG
     Route: 048
     Dates: start: 20131022, end: 20131027
  7. METGLUCO [Suspect]
     Indication: DIABETES MELLITUS
     Dosage: 250 MG
     Route: 048
     Dates: end: 20131027
  8. AMLODIPINE [Suspect]
     Indication: HYPERTENSION
     Dosage: 2.5 MG
     Route: 048
     Dates: end: 20131027
  9. PLAVIX [Suspect]
     Indication: CORONARY ANGIOPLASTY
     Dosage: 75 MG
     Route: 048
     Dates: end: 20131027
  10. PARIET [Suspect]
     Indication: PROPHYLAXIS AGAINST GASTROINTESTINAL ULCER
     Dosage: 10 MG
     Route: 048
     Dates: end: 20131027
  11. ATORVASTATIN CALCIUM TABLETS [Suspect]
     Indication: HYPERLIPIDAEMIA
     Dosage: 5 MG
     Route: 048
     Dates: end: 20131027

REACTIONS (3)
  - Liver disorder [Not Recovered/Not Resolved]
  - Malnutrition [Not Recovered/Not Resolved]
  - Hyponatraemia [Not Recovered/Not Resolved]
